FAERS Safety Report 6252724-1 (Version None)
Quarter: 2009Q3

REPORT INFORMATION
  Report Type: 
  Country: None (occurrence: None)
  Receive Date: 20090701
  Receipt Date: 20090623
  Transmission Date: 20100115
  Serious: Yes (Hospitalization, Other)
  Sender: FDA-Public Use
  Company Number: DE-PURDUE-DEU_2009_0005230

PATIENT
  Age: 75 Year
  Sex: Male

DRUGS (2)
  1. PALLADONE [Suspect]
     Indication: TUMOUR PAIN
     Route: 048
  2. TILIDIN N                          /00628301/ [Interacting]
     Indication: PAIN
     Route: 048

REACTIONS (2)
  - BREAKTHROUGH PAIN [None]
  - INHIBITORY DRUG INTERACTION [None]
